FAERS Safety Report 6725703-5 (Version None)
Quarter: 2010Q2

REPORT INFORMATION
  Report Type: 
  Country: None (occurrence: None)
  Receive Date: 20100513
  Receipt Date: 20100513
  Transmission Date: 20101027
  Serious: Yes (Hospitalization)
  Sender: FDA-Public Use
  Company Number: None

PATIENT
  Sex: Female
  Weight: 57 kg

DRUGS (13)
  1. HALOPERIDOL [Suspect]
     Indication: AGGRESSION
     Dosage: PO
     Route: 048
     Dates: start: 20100301, end: 20100301
  2. HALOPERIDOL [Suspect]
     Indication: BIPOLAR DISORDER
     Dosage: PO
     Route: 048
     Dates: start: 20100301, end: 20100301
  3. LITHIUM [Suspect]
     Indication: BIPOLAR DISORDER
     Dosage: 300 MG FOUR TIMES DAILY PO
     Route: 048
     Dates: start: 20000101, end: 20100322
  4. IMODIUM [Concomitant]
  5. AMBIEN [Concomitant]
  6. BROMOCRIPTINE [Concomitant]
  7. DANTROLENE [Concomitant]
  8. ALBUTEROL [Concomitant]
  9. LOPRESSOR [Concomitant]
  10. LORAZEPAM [Concomitant]
  11. LAMISIL [Concomitant]
  12. CLONAZEPAM [Concomitant]
  13. VALPROIC ACID -STAVZOR- [Concomitant]

REACTIONS (13)
  - AGGRESSION [None]
  - CATATONIA [None]
  - DYSPHAGIA [None]
  - HYPERNATRAEMIA [None]
  - MOANING [None]
  - NAUSEA [None]
  - NEUROLEPTIC MALIGNANT SYNDROME [None]
  - NO THERAPEUTIC RESPONSE [None]
  - PNEUMONIA ASPIRATION [None]
  - SCREAMING [None]
  - THERAPEUTIC AGENT TOXICITY [None]
  - UNRESPONSIVE TO STIMULI [None]
  - VOMITING [None]
